FAERS Safety Report 4456776-0 (Version None)
Quarter: 2004Q3

REPORT INFORMATION
  Report Type: 
  Country: None (occurrence: None)
  Receive Date: 20040921
  Receipt Date: 20040913
  Transmission Date: 20050211
  Serious: Yes (Death)
  Sender: FDA-Public Use
  Company Number: US-JNJFOC-20040903451

PATIENT
  Age: 17 Year
  Sex: Female

DRUGS (2)
  1. TYLENOL (GELTAB) [Suspect]
     Indication: SUICIDE ATTEMPT
     Dosage: 10 G, 1 IN 2 HOUR, ORAL
  2. ACETAMINOPHEN CAFFEINE PYRILAMINE (MIDOL) [Suspect]
     Indication: SUICIDE ATTEMPT
     Dosage: UNKNOWN IN 2 HOURS

REACTIONS (9)
  - ABDOMINAL PAIN [None]
  - COMPLETED SUICIDE [None]
  - HEPATIC FAILURE [None]
  - HEPATITIS TOXIC [None]
  - MULTI-ORGAN FAILURE [None]
  - MULTIPLE DRUG OVERDOSE [None]
  - NAUSEA [None]
  - RENAL FAILURE [None]
  - VOMITING [None]
